FAERS Safety Report 8820745 (Version 1)
Quarter: 2012Q4

REPORT INFORMATION
  Report Type: 
  Country: IT (occurrence: IT)
  Receive Date: 20121002
  Receipt Date: 20121002
  Transmission Date: 20130627
  Serious: Yes (Hospitalization)
  Sender: FDA-Public Use
  Company Number: IT-PFIZER INC-2012239697

PATIENT
  Age: 60 Year
  Sex: Female

DRUGS (5)
  1. FARMORUBICINA [Suspect]
     Indication: GASTRIC CANCER
     Dosage: 60 mg, UNK
     Route: 042
     Dates: start: 20120709, end: 20120709
  2. ELOXATIN [Suspect]
     Indication: GASTRIC CANCER
     Dosage: 160 mg, cyclic
     Route: 042
     Dates: start: 20120709, end: 20120709
  3. XELODA [Suspect]
     Indication: GASTRIC CANCER
     Dosage: 1500 mg, 1x/day
     Route: 048
     Dates: start: 20120709, end: 20120709
  4. OMEPRAZEN [Concomitant]
  5. ZOFRAN [Concomitant]

REACTIONS (6)
  - Abdominal pain [Recovering/Resolving]
  - Asthenia [Recovering/Resolving]
  - Nausea [Recovering/Resolving]
  - Vomiting [Recovering/Resolving]
  - Decreased appetite [Recovering/Resolving]
  - Intestinal obstruction [Unknown]
